FAERS Safety Report 13050534 (Version 1)
Quarter: 2016Q4

REPORT INFORMATION
  Report Type: Spontaneous
  Country: US (occurrence: US)
  Receive Date: 20161221
  Receipt Date: 20161221
  Transmission Date: 20170207
  Serious: No
  Sender: FDA-Public Use
  Company Number: US-GLAXOSMITHKLINE-US2016188398

PATIENT
  Sex: Female

DRUGS (5)
  1. DIOVAN [Concomitant]
     Active Substance: VALSARTAN
  2. ANORO ELLIPTA [Suspect]
     Active Substance: UMECLIDINIUM BROMIDE\VILANTEROL TRIFENATATE
     Indication: CHRONIC OBSTRUCTIVE PULMONARY DISEASE
     Dosage: 1 PUFF(S), QD
     Dates: start: 20161209
  3. OXYGEN. [Concomitant]
     Active Substance: OXYGEN
  4. DYAZIDE [Concomitant]
     Active Substance: HYDROCHLOROTHIAZIDE\TRIAMTERENE
  5. HYDROCHLOROTHIAZIDE. [Concomitant]
     Active Substance: HYDROCHLOROTHIAZIDE

REACTIONS (3)
  - Cough [Recovered/Resolved]
  - Underdose [Unknown]
  - Accidental exposure to product [Recovered/Resolved]
